FAERS Safety Report 7546741-9 (Version None)
Quarter: 2011Q2

REPORT INFORMATION
  Report Type: 
  Country: None (occurrence: None)
  Receive Date: 20110614
  Receipt Date: 20110204
  Transmission Date: 20111010
  Serious: Yes (Hospitalization)
  Sender: FDA-Public Use
  Company Number: B0698739A

PATIENT
  Sex: Male
  Weight: 45 kg

DRUGS (13)
  1. TACROLIMUS [Concomitant]
     Indication: IMMUNOSUPPRESSION
     Dosage: .9MG PER DAY
     Route: 065
     Dates: start: 20071016, end: 20071112
  2. FLUDARABINE PHOSPHATE [Suspect]
     Indication: STEM CELL TRANSPLANT
     Dosage: 30MGM2 PER DAY
     Route: 042
     Dates: start: 20071011, end: 20071015
  3. GRAN [Concomitant]
     Dates: start: 20071022, end: 20071111
  4. PIPERACILLIN [Concomitant]
     Dosage: 3G PER DAY
     Dates: start: 20071020, end: 20071025
  5. ZOFRAN [Suspect]
     Dosage: 4MG PER DAY
     Route: 042
     Dates: start: 20071011, end: 20071021
  6. FRAGMIN [Concomitant]
     Dosage: 3000IU PER DAY
     Route: 042
     Dates: start: 20071010, end: 20071130
  7. MEROPENEM [Concomitant]
     Dosage: 2G PER DAY
     Route: 042
     Dates: start: 20071025, end: 20071112
  8. METHOTREXATE [Suspect]
     Indication: IMMUNOSUPPRESSION
     Dosage: 21MG PER DAY
     Route: 065
     Dates: start: 20071018, end: 20071028
  9. VANCOMYCIN [Concomitant]
     Dosage: .9G PER DAY
     Route: 042
     Dates: start: 20071025, end: 20071106
  10. FUNGUARD [Concomitant]
     Dosage: 100MG PER DAY
     Route: 042
     Dates: start: 20071016, end: 20071130
  11. ALKERAN [Suspect]
     Dosage: 70MGM2 PER DAY
     Route: 042
     Dates: start: 20071014, end: 20071015
  12. ACIROVEC [Concomitant]
     Dosage: 600MG PER DAY
     Route: 042
     Dates: start: 20071010, end: 20071128
  13. FAMOTIDINE [Concomitant]
     Dosage: 40MG PER DAY
     Route: 042
     Dates: start: 20071021, end: 20071121

REACTIONS (2)
  - DIARRHOEA [None]
  - ABDOMINAL PAIN [None]
